FAERS Safety Report 6696434-5 (Version None)
Quarter: 2010Q2

REPORT INFORMATION
  Report Type: 
  Country: None (occurrence: None)
  Receive Date: 20100426
  Receipt Date: 20100422
  Transmission Date: 20101027
  Serious: Yes (Other)
  Sender: FDA-Public Use
  Company Number: DE-JNJFOC-20080500108

PATIENT
  Age: 48 Year
  Sex: Male

DRUGS (4)
  1. ABCIXIMAB [Suspect]
     Indication: MYOCARDIAL INFARCTION
     Route: 022
  2. ASPIRIN [Concomitant]
     Indication: MYOCARDIAL INFARCTION
  3. CLOPIDOGREL [Concomitant]
     Indication: MYOCARDIAL INFARCTION
  4. CLOPIDOGREL [Concomitant]

REACTIONS (1)
  - PLATELET COUNT INCREASED [None]
